FAERS Safety Report 9546628 (Version 2)
Quarter: 2013Q4

REPORT INFORMATION
  Report Type: Spontaneous
  Country: DE (occurrence: DE)
  Receive Date: 20130924
  Receipt Date: 20131025
  Transmission Date: 20140711
  Serious: Yes (Death)
  Sender: FDA-Public Use
  Company Number: DE-ROCHE-1279645

PATIENT
  Age: 41 Year
  Sex: Female

DRUGS (2)
  1. ZELBORAF [Suspect]
     Indication: LEUKAEMIA
     Route: 048
     Dates: start: 20130513, end: 201308
  2. ZELBORAF [Suspect]
     Indication: OFF LABEL USE

REACTIONS (1)
  - Leukaemia [Fatal]
